FAERS Safety Report 9202719 (Version 1)
Quarter: 2013Q2

REPORT INFORMATION
  Report Type: Spontaneous
  Country: US (occurrence: US)
  Receive Date: 20130401
  Receipt Date: 20130401
  Transmission Date: 20140414
  Serious: Yes (Other)
  Sender: FDA-Public Use
  Company Number: US-PFIZER INC-2013103219

PATIENT
  Age: 66 Year
  Sex: Male
  Weight: 63.49 kg

DRUGS (1)
  1. LIPITOR [Suspect]
     Indication: ARTHROPATHY
     Dosage: 10 MG, DAILY
     Dates: start: 200910

REACTIONS (1)
  - Heart valve calcification [Unknown]
